FAERS Safety Report 8108274-0 (Version None)
Quarter: 2012Q1

REPORT INFORMATION
  Report Type: 
  Country: None (occurrence: None)
  Receive Date: 20120202
  Receipt Date: 20120110
  Transmission Date: 20120608
  Serious: No
  Sender: FDA-Public Use
  Company Number: US-AMGEN-USASP2012002116

PATIENT
  Age: 55 Year
  Sex: Female

DRUGS (1)
  1. ENBREL [Suspect]
     Indication: PSORIATIC ARTHROPATHY
     Dosage: 50 MG, 2 TIMES/WK
     Dates: start: 20110509, end: 20120102

REACTIONS (9)
  - OEDEMA PERIPHERAL [None]
  - VAGINAL INFECTION [None]
  - UPPER-AIRWAY COUGH SYNDROME [None]
  - MUSCULOSKELETAL STIFFNESS [None]
  - RHINORRHOEA [None]
  - VULVOVAGINAL PRURITUS [None]
  - ORAL CANDIDIASIS [None]
  - COUGH [None]
  - VULVOVAGINAL MYCOTIC INFECTION [None]
